FAERS Safety Report 5899097-1 (Version None)
Quarter: 2008Q3

REPORT INFORMATION
  Report Type: 
  Country: None (occurrence: None)
  Receive Date: 20080925
  Receipt Date: 20080915
  Transmission Date: 20090109
  Serious: Yes (Other)
  Sender: FDA-Public Use
  Company Number: US-ELI_LILLY_AND_COMPANY-US200808004353

PATIENT
  Sex: Female

DRUGS (7)
  1. CYMBALTA [Suspect]
     Indication: DEPRESSION
     Dosage: 30 MG, UNK
  2. CYMBALTA [Suspect]
     Dosage: 30 MG, UNK
  3. NICOTINE [Concomitant]
  4. LORAZEPAM [Concomitant]
     Dosage: UNK, AS NEEDED
  5. MIRTAZAPINE [Concomitant]
     Dosage: 30 MG, UNK
  6. GABAPENTIN [Concomitant]
     Dosage: 100 MG, UNK
  7. ACIPHEX [Concomitant]
     Indication: GASTRIC DISORDER
     Dosage: 20 MG, UNK

REACTIONS (2)
  - CONVERSION DISORDER [None]
  - DYSPNOEA [None]
